FAERS Safety Report 9870007 (Version 1)
Quarter: 2014Q1

REPORT INFORMATION
  Report Type: Spontaneous
  Country: US (occurrence: US)
  Receive Date: 20140205
  Receipt Date: 20140205
  Transmission Date: 20141002
  Serious: No
  Sender: FDA-Public Use
  Company Number: US-GLAXOSMITHKLINE-A1024150A

PATIENT
  Age: 65 Year
  Sex: Female
  Weight: 99.5 kg

DRUGS (3)
  1. VALTREX [Suspect]
     Indication: HERPES ZOSTER
     Dosage: 500MG TWICE PER DAY
     Route: 048
  2. CATAPRES [Concomitant]
  3. HORMONE REPLACEMENT [Concomitant]

REACTIONS (1)
  - Hair growth abnormal [Not Recovered/Not Resolved]
